FAERS Safety Report 23331507 (Version 1)
Quarter: 2023Q4

REPORT INFORMATION
  Report Type: Spontaneous
  Country: US (occurrence: US)
  Receive Date: 20231222
  Receipt Date: 20231222
  Transmission Date: 20240110
  Serious: Yes (Hospitalization)
  Sender: FDA-Public Use
  Company Number: US-GLAXOSMITHKLINE-US2023GSK177672

PATIENT

DRUGS (1)
  1. BUPROPION [Suspect]
     Active Substance: BUPROPION
     Indication: Depression
     Dosage: UNK

REACTIONS (6)
  - Electrocardiogram abnormal [Unknown]
  - Mental status changes [Unknown]
  - Intentional overdose [Unknown]
  - Tachycardia [Unknown]
  - Lethargy [Unknown]
  - Sinus tachycardia [Unknown]
